FAERS Safety Report 6303908-5 (Version None)
Quarter: 2009Q3

REPORT INFORMATION
  Report Type: 
  Country: None (occurrence: None)
  Receive Date: 20090805
  Receipt Date: 20000921
  Transmission Date: 20100115
  Serious: No
  Sender: FDA-Public Use
  Company Number: 8011753

PATIENT
  Age: 54 Year
  Sex: Male

DRUGS (1)
  1. OLSALAZINE SODIUM [Suspect]
     Indication: CROHN'S DISEASE
     Dosage: PO
     Route: 048

REACTIONS (1)
  - NEUROPATHY PERIPHERAL [None]
